FAERS Safety Report 19972186 (Version 1)
Quarter: 2021Q4

REPORT INFORMATION
  Report Type: Spontaneous
  Country: US (occurrence: US)
  Receive Date: 20211015
  Receipt Date: 20211015
  Transmission Date: 20220303
  Serious: No
  Sender: FDA-Public Use
  Company Number: None

PATIENT
  Age: 72 Year
  Sex: Female
  Weight: 60.33 kg

DRUGS (3)
  1. CARBOPLATIN [Suspect]
     Active Substance: CARBOPLATIN
     Dates: end: 20151110
  2. TAXOL [Suspect]
     Active Substance: PACLITAXEL
     Dates: end: 20151110
  3. METFORMIN HYDROCHLORIDE [Suspect]
     Active Substance: METFORMIN HYDROCHLORIDE
     Dates: end: 20151209

REACTIONS (6)
  - Cytopenia [None]
  - Haemoglobin decreased [None]
  - Haematocrit decreased [None]
  - Dysplasia [None]
  - Platelet count decreased [None]
  - Myelodysplastic syndrome [None]

NARRATIVE: CASE EVENT DATE: 20210104
